FAERS Safety Report 9088949 (Version 1)
Quarter: 2013Q1

REPORT INFORMATION
  Report Type: Spontaneous
  Country: US (occurrence: US)
  Receive Date: 20130201
  Receipt Date: 20130201
  Transmission Date: 20140127
  Serious: No
  Sender: FDA-Public Use
  Company Number: US-GALDERMA-US-GDP-11412647

PATIENT
  Sex: Female

DRUGS (2)
  1. EPIDUO [Suspect]
     Route: 061
     Dates: start: 201107
  2. ZIANA [Suspect]
     Route: 061
     Dates: start: 201107

REACTIONS (2)
  - Dry skin [Unknown]
  - Skin exfoliation [Unknown]
